FAERS Safety Report 14188229 (Version 1)
Quarter: 2017Q4

REPORT INFORMATION
  Report Type: Spontaneous
  Country: AU (occurrence: AU)
  Receive Date: 20171114
  Receipt Date: 20171114
  Transmission Date: 20180321
  Serious: Yes (Life-Threatening, Other)
  Sender: FDA-Public Use
  Company Number: AU-PFIZER INC-2017436367

PATIENT
  Age: 64 Year
  Sex: Female

DRUGS (14)
  1. GARLIC /01570501/ [Concomitant]
     Active Substance: GARLIC
     Dosage: UNK
  2. OXYCODONE [Concomitant]
     Active Substance: OXYCODONE
     Dosage: 5 MG, UNK
     Route: 048
     Dates: start: 20170917
  3. GENTAMICIN. [Suspect]
     Active Substance: GENTAMICIN
     Indication: DIVERTICULITIS
     Dosage: 320 MG, DAILY
     Route: 042
     Dates: start: 20170917, end: 20170917
  4. AMPICILLIN [Concomitant]
     Active Substance: AMPICILLIN
     Dosage: 2 G, UNK
     Route: 042
     Dates: start: 20170917
  5. ESOMEPRAZOLE [Concomitant]
     Active Substance: ESOMEPRAZOLE
     Dosage: 20 MG, DAILY
  6. ATORVASTATIN [Concomitant]
     Active Substance: ATORVASTATIN
     Dosage: 20 MG, DAILY
  7. PARACETAMOL [Concomitant]
     Active Substance: ACETAMINOPHEN
     Dosage: 1 G, UNK
     Route: 048
     Dates: start: 20170917
  8. VITAMIN D /00107901/ [Concomitant]
     Active Substance: ERGOCALCIFEROL
     Dosage: UNK
  9. PARACETAMOL [Concomitant]
     Active Substance: ACETAMINOPHEN
     Dosage: 1 G, UNK
     Route: 048
     Dates: start: 20170917
  10. METRONIDAZOLE. [Concomitant]
     Active Substance: METRONIDAZOLE
     Dosage: 400 MG, UNK
     Route: 048
     Dates: start: 20170917
  11. OXYCODONE [Concomitant]
     Active Substance: OXYCODONE
     Dosage: 5 MG, UNK
     Route: 048
     Dates: start: 20170917
  12. SALBUTAMOL [Concomitant]
     Active Substance: ALBUTEROL
     Dosage: UNK UNK, AS NEEDED
  13. MULTIVITAMIN /00097801/ [Concomitant]
     Active Substance: VITAMINS
     Dosage: UNK
  14. IOSCAN /00028902/ [Concomitant]
     Dosage: 1 DF, UNK
     Dates: start: 20170917

REACTIONS (7)
  - Dysphonia [Recovered/Resolved]
  - Heart rate increased [Recovered/Resolved]
  - Mouth swelling [Recovered/Resolved]
  - Swollen tongue [Recovered/Resolved]
  - Generalised erythema [Recovered/Resolved]
  - Anaphylactoid reaction [Recovered/Resolved]
  - Rash [Recovered/Resolved]

NARRATIVE: CASE EVENT DATE: 20170917
